FAERS Safety Report 9932918 (Version 1)
Quarter: 2014Q1

REPORT INFORMATION
  Report Type: Spontaneous
  Country: US (occurrence: US)
  Receive Date: 20140228
  Receipt Date: 20140228
  Transmission Date: 20141002
  Serious: No
  Sender: FDA-Public Use
  Company Number: US-ABBVIE-13P-163-1076341-00

PATIENT
  Sex: Male
  Weight: 75.36 kg

DRUGS (10)
  1. ANDROGEL [Suspect]
     Indication: BLOOD TESTOSTERONE DECREASED
     Dates: start: 2012
  2. ANDROGEL [Suspect]
  3. DIOVAN [Concomitant]
     Indication: HYPERTENSION
  4. PLAVIX [Concomitant]
     Indication: CEREBROVASCULAR ACCIDENT
  5. TRICOR [Concomitant]
     Indication: BLOOD TRIGLYCERIDES INCREASED
  6. JANUVIA [Concomitant]
     Indication: DIABETES MELLITUS
  7. NIASPAN [Concomitant]
     Indication: BLOOD TRIGLYCERIDES INCREASED
  8. LOVAZA [Concomitant]
     Indication: BLOOD CHOLESTEROL INCREASED
  9. HUMALOG [Concomitant]
     Indication: DIABETES MELLITUS
  10. LANTUS [Concomitant]
     Indication: DIABETES MELLITUS

REACTIONS (3)
  - Inappropriate schedule of drug administration [Unknown]
  - Expired drug administered [Unknown]
  - Blood glucose increased [Not Recovered/Not Resolved]
